FAERS Safety Report 6359095-0 (Version None)
Quarter: 2009Q3

REPORT INFORMATION
  Report Type: 
  Country: None (occurrence: None)
  Receive Date: 20090917
  Receipt Date: 20071019
  Transmission Date: 20100115
  Serious: Yes (Other)
  Sender: FDA-Public Use
  Company Number: US-ASTRAZENECA-2006UW11473

PATIENT
  Age: 35 Year
  Sex: Female

DRUGS (16)
  1. SEROQUEL [Suspect]
     Indication: MENTAL DISORDER
     Route: 048
     Dates: start: 19980101
  2. SEROQUEL [Suspect]
     Dosage: 100-200 MG HS
     Route: 048
     Dates: start: 20010101
  3. ZYPREXA [Suspect]
     Dates: start: 19980101, end: 19990101
  4. ZYPREXA [Suspect]
     Dosage: 7.5 MG 1 AT HS
     Dates: start: 19991227, end: 20010401
  5. HALDOL [Concomitant]
     Dates: start: 20010110
  6. THORAZINE [Concomitant]
  7. VITAMIN E [Concomitant]
     Dates: start: 19991227
  8. AMILORIDE HYDROCHLORIDE [Concomitant]
     Dates: start: 19991227
  9. LITHIUM CARBONATE [Concomitant]
     Dates: start: 19991227
  10. DOCUSATE SODIUM [Concomitant]
     Dates: start: 20010110
  11. TRIHEXYPHENIDYL HCL [Concomitant]
     Dosage: 2 MG ONE HALF TID
     Dates: start: 20010110
  12. METOCLOPRAMIDE HYDROCHLORIDE [Concomitant]
     Dosage: 10 MG ONE HALF TO ONE
     Route: 048
     Dates: start: 20010110
  13. LANSOPRAZOLE [Concomitant]
     Dates: start: 20010110
  14. IBUPROFEN [Concomitant]
     Dates: start: 20010110
  15. HYDROXYZINE PAMOATE [Concomitant]
     Dosage: 50 MG 2 HS
     Dates: start: 20010110
  16. PROMETHAZINE [Concomitant]
     Dosage: 25 MG Q4 H PRN
     Dates: start: 20010110

REACTIONS (2)
  - DIABETES MELLITUS [None]
  - GESTATIONAL DIABETES [None]
